FAERS Safety Report 8033788-1 (Version None)
Quarter: 2012Q1

REPORT INFORMATION
  Report Type: 
  Country: None (occurrence: None)
  Receive Date: 20120110
  Receipt Date: 20120104
  Transmission Date: 20120608
  Serious: No
  Sender: FDA-Public Use
  Company Number: US-PFIZER INC-2012003704

PATIENT
  Age: 46 Year
  Sex: Female

DRUGS (2)
  1. RELPAX [Suspect]
     Indication: MIGRAINE
     Dosage: 40 MG
  2. RELPAX [Suspect]
     Indication: NAUSEA

REACTIONS (2)
  - HEADACHE [None]
  - VOMITING [None]
